FAERS Safety Report 11992735 (Version 1)
Quarter: 2016Q1

REPORT INFORMATION
  Report Type: Spontaneous
  Country: US (occurrence: None)
  Receive Date: 20160202
  Receipt Date: 20160202
  Transmission Date: 20160526
  Serious: No
  Sender: FDA-Public Use
  Company Number: None

PATIENT
  Age: 42 Year
  Sex: Female
  Weight: 54.43 kg

DRUGS (5)
  1. LIPODISSOLVE [Suspect]
     Active Substance: UNSPECIFIED INGREDIENT
  2. SINGULAIR [Concomitant]
     Active Substance: MONTELUKAST SODIUM
  3. VENTOLIN [Concomitant]
     Active Substance: ALBUTEROL SULFATE
  4. FLONASE [Concomitant]
     Active Substance: FLUTICASONE PROPIONATE
  5. MULTI-VITAMIN [Concomitant]
     Active Substance: .ALPHA.-TOCOPHEROL ACETATE, DL-\ASCORBIC ACID\CYANOCOBALAMIN\FLUORIDE ION\FOLIC ACID\NIACIN\PYRIDOXINE\RIBOFLAVIN\THIAMINE\VITAMIN A\VITAMIN D

REACTIONS (6)
  - Swelling [None]
  - Diarrhoea [None]
  - Vomiting [None]
  - Skin mass [None]
  - Abdominal pain [None]
  - Burning sensation [None]

NARRATIVE: CASE EVENT DATE: 20090305
